FAERS Safety Report 22119396 (Version 3)
Quarter: 2024Q4

REPORT INFORMATION
  Report Type: Report from Study
  Country: CA (occurrence: CA)
  Receive Date: 20230321
  Receipt Date: 20241019
  Transmission Date: 20250115
  Serious: Yes (Other)
  Sender: AMGEN
  Company Number: CA-002147023-NVSC2021CA133863

PATIENT
  Age: 54 Year
  Sex: Female

DRUGS (16)
  1. AIMOVIG [Suspect]
     Active Substance: ERENUMAB-AOOE
     Indication: Migraine
     Dosage: 140 MILLIGRAM, QMO
     Route: 058
     Dates: start: 20190920
  2. AIMOVIG [Suspect]
     Active Substance: ERENUMAB-AOOE
     Dosage: 140 MILLIGRAM, QMO
     Route: 058
     Dates: end: 20220720
  3. AIMOVIG [Suspect]
     Active Substance: ERENUMAB-AOOE
     Dosage: 140 MG, QMO FORMULATION (SOLUTION)
     Route: 058
  4. VENLAFAXINE HYDROCHLORIDE [Suspect]
     Active Substance: VENLAFAXINE HYDROCHLORIDE
     Indication: Migraine
     Dosage: UNK
     Route: 065
  5. TOPIRAMATE [Suspect]
     Active Substance: TOPIRAMATE
     Indication: Migraine
     Dosage: 100 MILLIGRAM, QD
     Route: 065
  6. QUETIAPINE FUMARATE [Suspect]
     Active Substance: QUETIAPINE FUMARATE
     Indication: Migraine
     Dosage: UNK
     Route: 065
  7. CLONAZEPAM [Suspect]
     Active Substance: CLONAZEPAM
     Indication: Migraine
     Dosage: UNK UNK, PRN
     Route: 065
  8. PROPRANOLOL [Concomitant]
     Active Substance: PROPRANOLOL HYDROCHLORIDE
     Indication: Mental disorder
     Dosage: 10 MILLIGRAM, QD
     Route: 065
  9. GABAPENTIN [Concomitant]
     Active Substance: GABAPENTIN
     Indication: Product used for unknown indication
     Dosage: 1200 MG, QD  AT BEDTIME
     Route: 065
  10. LITHIUM [Concomitant]
     Active Substance: LITHIUM
     Indication: Product used for unknown indication
     Dosage: UNK
     Route: 065
  11. SYNTHROID [Concomitant]
     Active Substance: LEVOTHYROXINE SODIUM
     Indication: Product used for unknown indication
     Dosage: UNK
     Route: 065
  12. SPIRONOLACTONE [Concomitant]
     Active Substance: SPIRONOLACTONE
     Indication: Product used for unknown indication
     Dosage: UNK
     Route: 065
  13. MIRABEGRON [Concomitant]
     Active Substance: MIRABEGRON
     Indication: Product used for unknown indication
     Dosage: UNK
     Route: 065
  14. ESTRADIOL [Concomitant]
     Active Substance: ESTRADIOL
     Indication: Product used for unknown indication
     Dosage: UNK
     Route: 065
  15. NITROGLYCERIN [Concomitant]
     Active Substance: NITROGLYCERIN
     Indication: Product used for unknown indication
     Dosage: UNK
     Route: 065
  16. NITROGLYCERIN [Concomitant]
     Active Substance: NITROGLYCERIN
     Indication: Product used for unknown indication
     Dosage: UNK
     Route: 065

REACTIONS (7)
  - Cardiac failure congestive [Unknown]
  - Skin cancer [Recovering/Resolving]
  - Dyspnoea [Unknown]
  - Pain [Unknown]
  - Migraine [Unknown]
  - Headache [Unknown]
  - Off label use [Recovering/Resolving]
